FAERS Safety Report 6038612-4 (Version None)
Quarter: 2009Q1

REPORT INFORMATION
  Report Type: 
  Country: None (occurrence: None)
  Receive Date: 20090114
  Receipt Date: 20090114
  Transmission Date: 20090719
  Serious: Yes (Life-Threatening)
  Sender: FDA-Public Use
  Company Number: None

PATIENT
  Age: 47 Year
  Sex: Female
  Weight: 59.8748 kg

DRUGS (2)
  1. HUMIRA [Suspect]
     Indication: CROHN'S DISEASE
     Dosage: 40 MG Q 2 WEEKS SUBCUT
     Route: 058
     Dates: start: 20070901
  2. HUMIRA [Suspect]
     Indication: CROHN'S DISEASE
     Dosage: 40 MG Q 2 WEEKS SUBCUT
     Route: 058
     Dates: start: 20080901

REACTIONS (4)
  - FINGER AMPUTATION [None]
  - MALIGNANT MELANOMA [None]
  - NAIL BED INFECTION [None]
  - NO THERAPEUTIC RESPONSE [None]
